FAERS Safety Report 9618723 (Version 1)
Quarter: 2013Q4

REPORT INFORMATION
  Report Type: Report from Study
  Country: GR (occurrence: GR)
  Receive Date: 20131014
  Receipt Date: 20131014
  Transmission Date: 20140711
  Serious: Yes (Hospitalization)
  Sender: FDA-Public Use
  Company Number: GR-ROCHE-1288561

PATIENT
  Age: 71 Year
  Sex: Female
  Weight: 57 kg

DRUGS (9)
  1. BEVACIZUMAB [Suspect]
     Indication: RENAL CANCER METASTATIC
     Dosage: 10 MG/KG, LAST DOSE PRIOR TO SAE ON 03/JUN/2013
     Route: 042
     Dates: start: 20120430
  2. TEMSIROLIMUS [Suspect]
     Indication: RENAL CANCER METASTATIC
     Dosage: LAST DOSE PRIOR TO SAE ON 17/JUN/2013
     Route: 042
     Dates: start: 20120430
  3. ZOFRAN [Concomitant]
     Indication: PREMEDICATION
     Route: 042
     Dates: start: 20120430, end: 20130617
  4. ZANTAC [Concomitant]
     Indication: PREMEDICATION
     Route: 042
     Dates: start: 20120430, end: 20130617
  5. FENISTIL (GREECE) [Concomitant]
     Indication: PREMEDICATION
     Route: 042
     Dates: start: 20120430, end: 20130617
  6. DEXAMETHASONE [Concomitant]
     Indication: PREMEDICATION
     Route: 042
     Dates: start: 20120430, end: 20130617
  7. CONTROLOC (PANTOPRAZOLE) [Concomitant]
     Indication: PROPHYLAXIS
     Route: 065
     Dates: start: 20130527
  8. DILATREND [Concomitant]
     Indication: PREMEDICATION
     Route: 065
     Dates: start: 20130527
  9. LONARID [Concomitant]
     Indication: METASTASES TO BONE
     Route: 065
     Dates: start: 20130627

REACTIONS (1)
  - Colitis [Recovered/Resolved]
